FAERS Safety Report 14857932 (Version 1)
Quarter: 2018Q2

REPORT INFORMATION
  Report Type: Spontaneous
  Country: US (occurrence: US)
  Receive Date: 20180508
  Receipt Date: 20180508
  Transmission Date: 20180711
  Serious: No
  Sender: FDA-Public Use
  Company Number: US-TEVA-2018-US-889087

PATIENT
  Age: 77 Year
  Sex: Male
  Weight: 92 kg

DRUGS (1)
  1. PROAIR RESPICLICK [Suspect]
     Active Substance: ALBUTEROL SULFATE
     Indication: ASTHMA
     Route: 065
     Dates: start: 2015

REACTIONS (3)
  - Weight decreased [Unknown]
  - Product storage error [Unknown]
  - Inappropriate schedule of drug administration [Unknown]
